FAERS Safety Report 9129582 (Version 1)
Quarter: 2013Q1

REPORT INFORMATION
  Report Type: Report from Study
  Country: CA (occurrence: CA)
  Receive Date: 20130228
  Receipt Date: 20130228
  Transmission Date: 20140127
  Serious: Yes (Other)
  Sender: FDA-Public Use
  Company Number: CA-JNJFOC-20130213750

PATIENT
  Sex: Female

DRUGS (1)
  1. REMICADE [Suspect]
     Indication: CROHN^S DISEASE
     Route: 042
     Dates: start: 200706

REACTIONS (4)
  - Spinal compression fracture [Unknown]
  - Surgery [Unknown]
  - Infusion related reaction [Recovering/Resolving]
  - Rash macular [Recovering/Resolving]
